FAERS Safety Report 8021830-3 (Version None)
Quarter: 2011Q4

REPORT INFORMATION
  Report Type: 
  Country: None (occurrence: None)
  Receive Date: 20111230
  Receipt Date: 20111216
  Transmission Date: 20120403
  Serious: Yes (Death)
  Sender: FDA-Public Use
  Company Number: 1000026528

PATIENT
  Age: 86 Year
  Sex: Female

DRUGS (6)
  1. AMIODARON HYDROCHLORIDE (AMIODARONE HYDROCHLORIDE) (AMIODARONE HYDROCH [Concomitant]
  2. POTASSIUM CHLORIDE [Concomitant]
  3. ESCITALOPRAM OXALATE [Suspect]
     Dosage: 5 MG (5 MG, 1 IN 1 D), ORAL
     Route: 048
     Dates: start: 20111206, end: 20111213
  4. HALOPERIDOL [Concomitant]
  5. DIGOXIN [Concomitant]
  6. FUROSEMID (FUROSEMIDE SODIUM) (FUROSEMIDE SODIUM) [Concomitant]

REACTIONS (5)
  - HYPONATRAEMIA [None]
  - DELUSION [None]
  - AGGRESSION [None]
  - BRONCHOPNEUMONIA [None]
  - BLOOD POTASSIUM INCREASED [None]
